FAERS Safety Report 14820370 (Version 2)
Quarter: 2018Q2

REPORT INFORMATION
  Report Type: Spontaneous
  Country: SK (occurrence: SK)
  Receive Date: 20180427
  Receipt Date: 20180503
  Transmission Date: 20180711
  Serious: Yes (Hospitalization)
  Sender: FDA-Public Use
  Company Number: SK-B.I. PHARMACEUTICALS,INC./RIDGEFIELD-2018-BI-021988

PATIENT
  Age: 64 Year
  Sex: Female
  Weight: 40 kg

DRUGS (2)
  1. GILOTRIF [Suspect]
     Active Substance: AFATINIB
     Indication: NON-SMALL CELL LUNG CANCER
     Route: 048
     Dates: start: 20160627, end: 20171212
  2. GILOTRIF [Suspect]
     Active Substance: AFATINIB
     Route: 048
     Dates: start: 20171212

REACTIONS (15)
  - Nausea [Unknown]
  - Azotaemia [Unknown]
  - Hypokalaemia [Unknown]
  - Food intolerance [Unknown]
  - Diarrhoea [Unknown]
  - Hypokalaemia [Unknown]
  - Hyponatraemia [Unknown]
  - Nephropathy [Unknown]
  - Asthenia [Unknown]
  - Anxiety [Unknown]
  - Diarrhoea [Unknown]
  - Blood creatinine increased [Unknown]
  - Dry skin [Unknown]
  - Weight decreased [Unknown]
  - Vomiting [Unknown]

NARRATIVE: CASE EVENT DATE: 201709
